FAERS Safety Report 18098075 (Version 1)
Quarter: 2020Q3

REPORT INFORMATION
  Report Type: Report from Study
  Country: US (occurrence: US)
  Receive Date: 20200731
  Receipt Date: 20200731
  Transmission Date: 20201103
  Serious: Yes (Hospitalization, Other)
  Sender: FDA-Public Use
  Company Number: US-SA-2020SA179882

PATIENT

DRUGS (3)
  1. ALEMTUZUMAB [Suspect]
     Active Substance: ALEMTUZUMAB
     Indication: MULTIPLE SCLEROSIS
     Dosage: 12 MG, QD
     Route: 041
     Dates: start: 20190219, end: 20190221
  2. ALEMTUZUMAB [Suspect]
     Active Substance: ALEMTUZUMAB
     Dosage: 12 MG, QD
     Route: 041
     Dates: start: 20180129, end: 20180202
  3. TYSABRI [Concomitant]
     Active Substance: NATALIZUMAB

REACTIONS (17)
  - Gait inability [Unknown]
  - Drug monitoring procedure not performed [Unknown]
  - Dysuria [Not Recovered/Not Resolved]
  - Laboratory test abnormal [Unknown]
  - Fungal infection [Not Recovered/Not Resolved]
  - Condition aggravated [Not Recovered/Not Resolved]
  - Benign lymph node neoplasm [Unknown]
  - Herpes ophthalmic [Unknown]
  - Cystitis [Not Recovered/Not Resolved]
  - Herpes zoster [Unknown]
  - Balance disorder [Not Recovered/Not Resolved]
  - Bladder pain [Not Recovered/Not Resolved]
  - JC polyomavirus test positive [Unknown]
  - Coccydynia [Unknown]
  - Off label use [Unknown]
  - Renal disorder [Unknown]
  - Mobility decreased [Not Recovered/Not Resolved]

NARRATIVE: CASE EVENT DATE: 2019
